FAERS Safety Report 10065288 (Version 2)
Quarter: 2014Q2

REPORT INFORMATION
  Report Type: Report from Study
  Country: US (occurrence: US)
  Receive Date: 20140408
  Receipt Date: 20140408
  Transmission Date: 20141212
  Serious: Yes (Hospitalization)
  Sender: FDA-Public Use
  Company Number: PHEH2014US004701

PATIENT
  Age: 51 Year
  Sex: Male

DRUGS (4)
  1. TASIGNA [Suspect]
     Indication: CHRONIC MYELOID LEUKAEMIA
     Dosage: 300 MG, BID
     Route: 048
     Dates: start: 20140211
  2. ALLOPURINOL [Concomitant]
  3. AMOXICILLIN [Concomitant]
  4. LANZOPRAZOL [Concomitant]

REACTIONS (6)
  - Headache [Unknown]
  - Weight decreased [Unknown]
  - Myalgia [Unknown]
  - Rash [Unknown]
  - Respiratory tract congestion [Unknown]
  - Cough [Unknown]
